FAERS Safety Report 5400463-9 (Version None)
Quarter: 2007Q3

REPORT INFORMATION
  Report Type: 
  Country: None (occurrence: None)
  Receive Date: 20070725
  Receipt Date: 20070713
  Transmission Date: 20080115
  Serious: Yes (Life-Threatening, Hospitalization)
  Sender: FDA-Public Use
  Company Number: GXKR2007IT06054

PATIENT
  Age: 31 Year
  Sex: Male

DRUGS (2)
  1. KETOPROFEN [Suspect]
     Indication: SYSTEMIC LUPUS ERYTHEMATOSUS
  2. CARBAMAZEPINE [Concomitant]

REACTIONS (2)
  - TOXIC EPIDERMAL NECROLYSIS [None]
  - WOUND INFECTION STAPHYLOCOCCAL [None]
